FAERS Safety Report 4514250-7 (Version None)
Quarter: 2004Q4

REPORT INFORMATION
  Report Type: 
  Country: None (occurrence: None)
  Receive Date: 20040928
  Receipt Date: 20040624
  Transmission Date: 20050328
  Serious: No
  Sender: FDA-Public Use
  Company Number: 04P-163-0264833-00

PATIENT
  Age: 71 Year
  Sex: Female

DRUGS (20)
  1. HUMIRA [Suspect]
     Indication: RHEUMATOID ARTHRITIS
     Dosage: 40 MG, 1 IN 2 WK, SUBCUTANEOUS
     Route: 058
     Dates: start: 20040623
  2. VENLAFAXINEHYDROCHLORIDE [Concomitant]
  3. MELOXICAM [Concomitant]
  4. SULFASALAZINE [Concomitant]
  5. AMOXICILLIN TRIHYDRATE [Concomitant]
  6. HYDROXYCHLOROQUINE SULFATE [Concomitant]
  7. FOLIC ACID [Concomitant]
  8. ERGOCALCIFEROL [Concomitant]
  9. CONJUGATED ESTROGEN [Concomitant]
  10. PROGESTERONE [Concomitant]
  11. ATORVASTATIN CALCIUM [Concomitant]
  12. SALMETEROL XINAFOATE [Concomitant]
  13. BUDESONIDE [Concomitant]
  14. COMBIVENT [Concomitant]
  15. PRIMROSE OIL [Concomitant]
  16. TRIPLE FLEX [Concomitant]
  17. ASCORBIC ACID [Concomitant]
  18. TOCOPHEROL CONCENTRATE CAP [Concomitant]
  19. PYRIDOXINE HYDROCHLORIDE [Concomitant]
  20. CALCIUM CITRATE [Concomitant]

REACTIONS (2)
  - FLUSHING [None]
  - HEADACHE [None]
